FAERS Safety Report 7394000-X (Version None)
Quarter: 2011Q2

REPORT INFORMATION
  Report Type: 
  Country: None (occurrence: None)
  Receive Date: 20110405
  Receipt Date: 20100927
  Transmission Date: 20111010
  Serious: Yes (Other)
  Sender: FDA-Public Use
  Company Number: US-AMGEN-QUU441322

PATIENT
  Age: 53 Year
  Sex: Female

DRUGS (3)
  1. DOCETAXEL [Concomitant]
     Dosage: UNK UNK, UNK
     Dates: start: 20100831
  2. CYCLOPHOSPHAMIDE [Concomitant]
     Dosage: UNK UNK, UNK
     Dates: start: 20100831
  3. NEULASTA [Suspect]
     Indication: CHEMOTHERAPY
     Dosage: 6 MG, QCYCLE
     Route: 065
     Dates: start: 20100902

REACTIONS (2)
  - PYREXIA [None]
  - PAIN IN JAW [None]
